FAERS Safety Report 4363980-9 (Version None)
Quarter: 2004Q2

REPORT INFORMATION
  Report Type: 
  Country: None (occurrence: None)
  Receive Date: 20040511
  Receipt Date: 20040422
  Transmission Date: 20050107
  Serious: Yes (Other)
  Sender: FDA-Public Use
  Company Number: 206077

PATIENT
  Age: 37 Year
  Sex: Female

DRUGS (1)
  1. HERCEPTIN [Suspect]
     Indication: BREAST CANCER
     Dosage: 132 MG, 1/WEEK, INTRAVENOUS
     Route: 042
     Dates: start: 19981001

REACTIONS (1)
  - RETINOPATHY [None]
